FAERS Safety Report 12669037 (Version 1)
Quarter: 2016Q3

REPORT INFORMATION
  Report Type: Spontaneous
  Country: NL (occurrence: NL)
  Receive Date: 20160819
  Receipt Date: 20160819
  Transmission Date: 20161109
  Serious: Yes (Other)
  Sender: FDA-Public Use
  Company Number: NL-009507513-1408NLD012014

PATIENT
  Sex: Male

DRUGS (1)
  1. SIMVASTATIN. [Suspect]
     Active Substance: SIMVASTATIN
     Indication: PRODUCT USED FOR UNKNOWN INDICATION
     Dosage: 1DD1
     Route: 048

REACTIONS (5)
  - Muscle rupture [Recovered/Resolved]
  - Polyuria [Unknown]
  - Muscle contractions involuntary [Recovered/Resolved]
  - Myoglobinuria [Unknown]
  - Inguinal hernia [Unknown]
